FAERS Safety Report 20410351 (Version 1)
Quarter: 2022Q1

REPORT INFORMATION
  Report Type: Spontaneous
  Country: US (occurrence: US)
  Receive Date: 20220201
  Receipt Date: 20220201
  Transmission Date: 20220423
  Serious: No
  Sender: FDA-Public Use
  Company Number: US-CELGENE-USA-20220107073

PATIENT
  Sex: Male
  Weight: 81.720 kg

DRUGS (1)
  1. REVLIMID [Suspect]
     Active Substance: LENALIDOMIDE
     Indication: Follicular lymphoma
     Dosage: 20 MILLIGRAM
     Route: 048
     Dates: start: 20210511

REACTIONS (3)
  - Fatigue [Recovering/Resolving]
  - Dyspnoea [Recovering/Resolving]
  - Muscle spasms [Recovering/Resolving]
